FAERS Safety Report 5740648-5 (Version None)
Quarter: 2008Q2

REPORT INFORMATION
  Report Type: 
  Country: None (occurrence: None)
  Receive Date: 20080516
  Receipt Date: 20080508
  Transmission Date: 20081010
  Serious: Yes (Other)
  Sender: FDA-Public Use
  Company Number: B0520373A

PATIENT
  Age: 42 Year
  Sex: Female

DRUGS (2)
  1. ALBUTEROL [Suspect]
     Route: 065
  2. BUDESONIDE [Concomitant]

REACTIONS (9)
  - ABDOMINAL PAIN [None]
  - ANAPHYLACTIC REACTION [None]
  - CHEST DISCOMFORT [None]
  - ERYTHEMA [None]
  - EYELID OEDEMA [None]
  - NAUSEA [None]
  - OEDEMA PERIPHERAL [None]
  - PRURITUS [None]
  - PRURITUS GENERALISED [None]
